FAERS Safety Report 8445833-X (Version None)
Quarter: 2012Q2

REPORT INFORMATION
  Report Type: 
  Country: None (occurrence: None)
  Receive Date: 20120618
  Receipt Date: 20120604
  Transmission Date: 20120825
  Serious: Yes (Death, Life-Threatening)
  Sender: FDA-Public Use
  Company Number: GB-TEVA-2011004511

PATIENT
  Sex: Female
  Weight: 95 kg

DRUGS (26)
  1. CETRIZINE (CETIRIZINE HYDROCHLORIDE) [Concomitant]
  2. AMITRIPTYLINE HCL [Concomitant]
  3. CALCICHEW D3 FORTE [Concomitant]
  4. MABTHERA [Suspect]
     Indication: CHRONIC LYMPHOCYTIC LEUKAEMIA
     Dosage: 700 MILLIGRAM;
     Route: 042
     Dates: start: 20110804
  5. PROMETHAZINE [Concomitant]
  6. FLUCONAZOLE [Concomitant]
  7. METOCLOPRAMIDE [Concomitant]
  8. ACYCLOVIR [Concomitant]
  9. BENDAMUSTINE HYDROCHLORIDE [Suspect]
     Indication: CHRONIC LYMPHOCYTIC LEUKAEMIA
     Dosage: 125 MILLIGRAM;
     Route: 042
     Dates: start: 20110804
  10. CAMPATH [Concomitant]
     Indication: CHRONIC LYMPHOCYTIC LEUKAEMIA
     Dates: start: 20100101
  11. ATORVASTATIN CALCIUM [Concomitant]
  12. RISEDRONIC ACID [Concomitant]
  13. DAPSONE [Concomitant]
  14. MONOCLONAL ANTIBODIES [Concomitant]
     Indication: CHRONIC LYMPHOCYTIC LEUKAEMIA
     Dates: start: 20090101
  15. FLUDARA [Concomitant]
     Dates: start: 20010101
  16. CANDESARTAN CILEXETIL [Concomitant]
     Indication: BLOOD PRESSURE
  17. LACTULOSE [Concomitant]
  18. RANITIDINE [Concomitant]
  19. OMEPRAZOLE [Concomitant]
  20. LEVOTHYROXINE SODIUM [Concomitant]
  21. SENNA-MINT WAF [Concomitant]
  22. CHLORHEXIDINE GLUCONATE [Concomitant]
  23. OILATUM [Concomitant]
  24. PREDNISOLONE [Concomitant]
  25. ALLOPURINOL [Concomitant]
  26. ONDANSETRON [Concomitant]

REACTIONS (1)
  - PROGRESSIVE MULTIFOCAL LEUKOENCEPHALOPATHY [None]
